FAERS Safety Report 7268053-3 (Version None)
Quarter: 2010Q4

REPORT INFORMATION
  Report Type: 
  Country: None (occurrence: None)
  Receive Date: 20101206
  Receipt Date: 20100614
  Transmission Date: 20110411
  Serious: Yes (Hospitalization)
  Sender: FDA-Public Use
  Company Number: 2010SP035267

PATIENT
  Age: 50 Year
  Sex: Male

DRUGS (6)
  1. SAPHRIS [Suspect]
     Indication: BIPOLAR DISORDER
     Dosage: 5 MG; QD; SL, 10 MG: QD; SL
     Route: 060
     Dates: end: 20100608
  2. SAPHRIS [Suspect]
     Indication: SCHIZOPHRENIA
     Dosage: 5 MG; QD; SL, 10 MG: QD; SL
     Route: 060
     Dates: end: 20100608
  3. SAPHRIS [Suspect]
     Indication: BIPOLAR DISORDER
     Dosage: 5 MG; QD; SL, 10 MG: QD; SL
     Route: 060
     Dates: start: 20100601
  4. SAPHRIS [Suspect]
     Indication: SCHIZOPHRENIA
     Dosage: 5 MG; QD; SL, 10 MG: QD; SL
     Route: 060
     Dates: start: 20100601
  5. THORAZINE [Concomitant]
  6. BUPROPION [Concomitant]

REACTIONS (2)
  - INAPPROPRIATE SCHEDULE OF DRUG ADMINISTRATION [None]
  - MANIA [None]
